FAERS Safety Report 4525222-0 (Version None)
Quarter: 2004Q4

REPORT INFORMATION
  Report Type: 
  Country: None (occurrence: None)
  Receive Date: 20041213
  Receipt Date: 20041201
  Transmission Date: 20050328
  Serious: Yes (Other)
  Sender: FDA-Public Use
  Company Number: GB-BRISTOL-MYERS SQUIBB COMPANY-12780490

PATIENT
  Age: 29 Year
  Sex: Female

DRUGS (5)
  1. DIDANOSINE [Suspect]
     Indication: HIV INFECTION
     Dates: start: 20040101, end: 20040506
  2. KALETRA [Suspect]
     Indication: HIV INFECTION
     Dates: start: 20040101, end: 20040506
  3. VIREAD [Suspect]
     Indication: HIV INFECTION
     Dates: start: 20040101, end: 20040506
  4. COMBIVIR [Suspect]
     Indication: HIV INFECTION
     Dates: start: 20040506
  5. NELFINAVIR [Suspect]
     Indication: HIV INFECTION
     Dates: start: 20040506

REACTIONS (3)
  - DRUG EXPOSURE DURING PREGNANCY [None]
  - INTRA-UTERINE DEATH [None]
  - PREGNANCY [None]
